FAERS Safety Report 7335584-7 (Version None)
Quarter: 2011Q1

REPORT INFORMATION
  Report Type: 
  Country: None (occurrence: None)
  Receive Date: 20110307
  Receipt Date: 20110226
  Transmission Date: 20110831
  Serious: Yes (Other)
  Sender: FDA-Public Use
  Company Number: US-B.I. PHARMACEUTICALS,INC./RIDGEFIELD-2011-BP-05470BP

PATIENT
  Age: 89 Year
  Sex: Female

DRUGS (4)
  1. METOPROLOL [Concomitant]
     Indication: HYPERTENSION
     Route: 048
  2. DIGOXIN [Concomitant]
     Indication: ATRIAL FIBRILLATION
     Route: 048
  3. PRADAXA [Suspect]
     Indication: ATRIAL FIBRILLATION
     Dosage: 300 MG
     Route: 048
     Dates: start: 20110215
  4. ALPHAGAN [Concomitant]
     Indication: GLAUCOMA
     Route: 031

REACTIONS (4)
  - CHEST PAIN [None]
  - ARTHRALGIA [None]
  - DYSPEPSIA [None]
  - OROPHARYNGEAL PAIN [None]
